FAERS Safety Report 7122566-3 (Version None)
Quarter: 2010Q4

REPORT INFORMATION
  Report Type: 
  Country: None (occurrence: None)
  Receive Date: 20101124
  Receipt Date: 20101116
  Transmission Date: 20110411
  Serious: Yes (Other)
  Sender: FDA-Public Use
  Company Number: CA-JNJFOC-20101007531

PATIENT
  Sex: Female
  Weight: 81.65 kg

DRUGS (8)
  1. EXTRA STRENGTH TYLENOL [Suspect]
     Indication: PAIN IN EXTREMITY
     Dosage: TIMES DAILY
     Route: 048
  2. EXTRA STRENGTH TYLENOL [Suspect]
     Route: 048
  3. COUMADIN [Concomitant]
     Indication: ANTICOAGULANT THERAPY
  4. FUMARATE DISODIUM [Concomitant]
     Indication: CARDIAC DISORDER
  5. LEVOTHYROXINE SODIUM [Concomitant]
     Indication: THYROID DISORDER
  6. FUROSEMIDE [Concomitant]
     Indication: DIURETIC THERAPY
  7. MULTI-VITAMINS [Concomitant]
     Indication: NUTRITIONAL SUPPORT
     Dosage: CALCIUM/MG/ZN 666 MG, OMEGA 3 2000 MG, VIT D 400 MG
  8. LUTEIN [Concomitant]
     Indication: EYE DISORDER

REACTIONS (2)
  - CONSTIPATION [None]
  - INTERNATIONAL NORMALISED RATIO INCREASED [None]
